FAERS Safety Report 7352890-0 (Version None)
Quarter: 2011Q1

REPORT INFORMATION
  Report Type: 
  Country: None (occurrence: None)
  Receive Date: 20110315
  Receipt Date: 20110310
  Transmission Date: 20110831
  Serious: Yes (Other)
  Sender: FDA-Public Use
  Company Number: A0917606A

PATIENT
  Sex: Female
  Weight: 75 kg

DRUGS (5)
  1. UNKNOWN [Concomitant]
  2. NIQUITIN 21MG [Suspect]
     Indication: SMOKING CESSATION THERAPY
     Route: 062
  3. CAPTOPRIL [Concomitant]
  4. FLUOXETINA [Concomitant]
  5. NIQUITIN 14MG [Suspect]
     Indication: SMOKING CESSATION THERAPY
     Dosage: 14MG PER DAY
     Route: 062
     Dates: start: 20101220

REACTIONS (6)
  - DRUG ADMINISTRATION ERROR [None]
  - HEADACHE [None]
  - ASPHYXIA [None]
  - NICOTINE DEPENDENCE [None]
  - PRODUCT QUALITY ISSUE [None]
  - HYPERTENSION [None]
